FAERS Safety Report 6594272-5 (Version None)
Quarter: 2010Q1

REPORT INFORMATION
  Report Type: 
  Country: None (occurrence: None)
  Receive Date: 20100222
  Receipt Date: 20100212
  Transmission Date: 20100710
  Serious: Yes (Other)
  Sender: FDA-Public Use
  Company Number: JP-BRISTOL-MYERS SQUIBB COMPANY-14979074

PATIENT
  Age: 73 Year
  Sex: Female

DRUGS (1)
  1. KENACORT [Suspect]
     Route: 014
     Dates: start: 20091028

REACTIONS (2)
  - HAEMARTHROSIS [None]
  - INJECTION SITE PAIN [None]
